FAERS Safety Report 20246753 (Version 1)
Quarter: 2021Q4

REPORT INFORMATION
  Report Type: Report from Study
  Country: US (occurrence: US)
  Receive Date: 20211229
  Receipt Date: 20211229
  Transmission Date: 20220303
  Serious: Yes (Other)
  Sender: FDA-Public Use
  Company Number: US-GSKCCFUS-Case-01252659_AE-73322

PATIENT
  Sex: Female

DRUGS (1)
  1. BELIMUMAB [Suspect]
     Active Substance: BELIMUMAB
     Indication: Product used for unknown indication
     Dosage: 200 MG/ML

REACTIONS (9)
  - Mental impairment [Unknown]
  - Loss of consciousness [Unknown]
  - Haematochezia [Recovered/Resolved]
  - Memory impairment [Unknown]
  - Depression [Unknown]
  - Injection site reaction [Unknown]
  - Fall [Unknown]
  - Dizziness [Unknown]
  - Feeling abnormal [Unknown]
